FAERS Safety Report 5131447-6 (Version None)
Quarter: 2006Q4

REPORT INFORMATION
  Report Type: 
  Country: None (occurrence: None)
  Receive Date: 20061020
  Receipt Date: 20061019
  Transmission Date: 20070319
  Serious: Yes (Other)
  Sender: FDA-Public Use
  Company Number: US-BRISTOL-MYERS SQUIBB COMPANY-13547286

PATIENT
  Age: 71 Year
  Sex: Male

DRUGS (4)
  1. COUMADIN [Suspect]
  2. TOPROL-XL [Suspect]
  3. TORSEMIDE [Suspect]
  4. METOCLOPRAMIDE [Suspect]

REACTIONS (1)
  - PROSTATE CANCER METASTATIC [None]
